FAERS Safety Report 8240157-8 (Version None)
Quarter: 2012Q1

REPORT INFORMATION
  Report Type: 
  Country: None (occurrence: None)
  Receive Date: 20120328
  Receipt Date: 20120322
  Transmission Date: 20120608
  Serious: Yes (Death)
  Sender: FDA-Public Use
  Company Number: CN-PFIZER INC-2012077045

PATIENT
  Age: 53 Year
  Sex: Male

DRUGS (1)
  1. MS CONTIN [Suspect]
     Dosage: 30 MG, DAILY
     Route: 048
     Dates: start: 20100812, end: 20100812

REACTIONS (1)
  - RESPIRATORY DEPRESSION [None]
